FAERS Safety Report 7188940-4 (Version None)
Quarter: 2010Q4

REPORT INFORMATION
  Report Type: 
  Country: None (occurrence: None)
  Receive Date: 20101222
  Receipt Date: 20100729
  Transmission Date: 20110411
  Serious: No
  Sender: FDA-Public Use
  Company Number: US-AMGEN-KDL428011

PATIENT

DRUGS (23)
  1. ENBREL [Suspect]
     Indication: PRODUCT USED FOR UNKNOWN INDICATION
     Dosage: 50 MG, QWK
     Route: 058
  2. SIMVASTATIN [Concomitant]
     Dosage: 5 MG, UNK
  3. ALENDRONATE SODIUM [Concomitant]
     Dosage: 5 MG, UNK
  4. DESVENLAFAXINE [Concomitant]
     Dosage: 50 MG, UNK
  5. ALPRAZOLAM [Concomitant]
     Dosage: .25 MG, UNK
  6. CARISOPRODOL [Concomitant]
     Dosage: 250 MG, UNK
  7. PREDNISONE [Concomitant]
     Dosage: 1 MG, UNK
  8. LISINOPRIL [Concomitant]
     Dosage: 2.5 MG, UNK
  9. IBUPROFEN [Concomitant]
     Dosage: 200 MG, UNK
  10. FOLIC ACID [Concomitant]
     Dosage: 1 MG, UNK
  11. ACYCLOVIR [Concomitant]
     Dosage: 400 MG, UNK
  12. ASCORBIC ACID [Concomitant]
     Dosage: 500 MG, UNK
  13. OMEPRAZOLE [Concomitant]
     Dosage: 10 MG, UNK
  14. ERGOCALCIFEROL [Concomitant]
     Dosage: 400 IU, UNK
  15. CYCLOBENZAPRINE HCL [Concomitant]
     Dosage: 5 MG, UNK
  16. VITAMIN B COMPLEX [Concomitant]
     Dosage: UNK UNK, UNK
  17. ZINC [Concomitant]
     Dosage: 30 MG, UNK
  18. OXYCODONE HYDROCHLORIDE [Concomitant]
     Dosage: 10 MG, UNK
  19. CALCIUM/VITAMIN D [Concomitant]
     Dosage: UNK UNK, UNK
  20. HERBAL SUPPLEMENT [Concomitant]
     Dosage: 500 MG, UNK
  21. DEXTROPROPOXYPHENE NAPSILATE [Concomitant]
     Dosage: 100 MG, UNK
  22. LOVAZA [Concomitant]
     Dosage: 1000 MG, UNK
  23. ADALIMUMAB [Concomitant]

REACTIONS (1)
  - ORAL HERPES [None]
